FAERS Safety Report 20355601 (Version 1)
Quarter: 2022Q1

REPORT INFORMATION
  Report Type: Spontaneous
  Country: US (occurrence: US)
  Receive Date: 20220120
  Receipt Date: 20220120
  Transmission Date: 20220423
  Serious: Yes (Hospitalization, Other)
  Sender: FDA-Public Use
  Company Number: US-Accord-250915

PATIENT
  Age: 50 Year
  Sex: Female

DRUGS (10)
  1. MITOMYCIN [Interacting]
     Active Substance: MITOMYCIN
     Indication: Keratectomy
     Dosage: MITOMYCIN C 0.02% WAS APPLIED FOR 12 SECONDS
  2. BROMFENAC SODIUM [Interacting]
     Active Substance: BROMFENAC SODIUM
     Indication: Inflammation
     Dosage: TOPICAL BROMFENAC 0.07% DROPS THREE TIMES DAILY
     Route: 061
  3. PRED FORTE [Interacting]
     Active Substance: PREDNISOLONE ACETATE
     Indication: Inflammation
     Dosage: PREDNISOLONE DROPS WERE INCREASED TO EIGHT TIMES PER DAY
  4. BESIFLOXACIN [Interacting]
     Active Substance: BESIFLOXACIN
     Indication: Product used for unknown indication
     Dosage: 0.6% DROPS FOUR TIMES DAILY
  5. ZADITOR [Interacting]
     Active Substance: KETOTIFEN FUMARATE
     Indication: Pruritus
     Dosage: TWICE DAILY OU
  6. VIGAMOX [Concomitant]
     Active Substance: MOXIFLOXACIN HYDROCHLORIDE
     Indication: Prophylaxis
     Dosage: MOXIFLOXACIN 0.5%, USED TWICE DAILY
  7. DIFLUPREDNATE [Concomitant]
     Active Substance: DIFLUPREDNATE
     Indication: Corneal opacity
     Dosage: DROPS WERE STARTED EVERY SIX HOURS OU
  8. LIFITEGRAST [Concomitant]
     Active Substance: LIFITEGRAST
  9. BRINZOLAMIDE, BRIMONIDINE [Concomitant]
     Indication: Glaucoma
     Dosage: THREE TIMES DAILY
  10. LOTEMAX [Concomitant]
     Active Substance: LOTEPREDNOL ETABONATE
     Dosage: HOURLY

REACTIONS (11)
  - Visual acuity reduced [Recovered/Resolved]
  - Ocular discomfort [Unknown]
  - Corneal endothelial cell loss [Recovered/Resolved]
  - Corneal defect [Recovered/Resolved]
  - Impaired healing [Unknown]
  - Corneal oedema [Recovered/Resolved]
  - Corneal opacity [Unknown]
  - Punctate keratitis [Unknown]
  - Off label use [Unknown]
  - Incorrect route of product administration [Unknown]
  - Potentiating drug interaction [Unknown]
